FAERS Safety Report 14299234 (Version 1)
Quarter: 2017Q4

REPORT INFORMATION
  Report Type: Spontaneous
  Country: US (occurrence: US)
  Receive Date: 20171219
  Receipt Date: 20171219
  Transmission Date: 20180321
  Serious: Yes (Hospitalization)
  Sender: FDA-Public Use
  Company Number: US-ASTRAZENECA-2017SF19170

PATIENT
  Sex: Female

DRUGS (4)
  1. BYETTA [Suspect]
     Active Substance: EXENATIDE
     Route: 065
  2. BYETTA [Suspect]
     Active Substance: EXENATIDE
     Route: 065
  3. METFORMIN [Concomitant]
     Active Substance: METFORMIN HYDROCHLORIDE
     Dosage: 500.0MG UNKNOWN
  4. BYETTA [Suspect]
     Active Substance: EXENATIDE
     Route: 058

REACTIONS (4)
  - Circumstance or information capable of leading to medication error [Unknown]
  - Blood glucose decreased [Unknown]
  - Cholelithiasis [Unknown]
  - Weight decreased [Unknown]
